FAERS Safety Report 7030826-X (Version None)
Quarter: 2010Q4

REPORT INFORMATION
  Report Type: 
  Country: None (occurrence: None)
  Receive Date: 20101006
  Receipt Date: 20100929
  Transmission Date: 20110411
  Serious: No
  Sender: FDA-Public Use
  Company Number: US-PFIZER INC-2010124188

PATIENT
  Sex: Female

DRUGS (1)
  1. NARDIL [Suspect]
     Dosage: 15 MG, 1X/DAY
     Route: 048

REACTIONS (3)
  - DYSGEUSIA [None]
  - NAUSEA [None]
  - VOMITING [None]
